FAERS Safety Report 8184536-6 (Version None)
Quarter: 2012Q1

REPORT INFORMATION
  Report Type: 
  Country: None (occurrence: None)
  Receive Date: 20120305
  Receipt Date: 20120221
  Transmission Date: 20120608
  Serious: Yes (Hospitalization)
  Sender: FDA-Public Use
  Company Number: RU-MERCK-1202USA03057

PATIENT

DRUGS (1)
  1. PRIMAXIN [Suspect]
     Indication: INTRAUTERINE INFECTION
     Route: 065

REACTIONS (2)
  - HAEMORRHAGE [None]
  - INTRAUTERINE INFECTION [None]
